FAERS Safety Report 4733427-9 (Version None)
Quarter: 2005Q3

REPORT INFORMATION
  Report Type: 
  Country: None (occurrence: None)
  Receive Date: 20050729
  Receipt Date: 20050721
  Transmission Date: 20060218
  Serious: Yes (Hospitalization)
  Sender: FDA-Public Use
  Company Number: B0328652A

PATIENT
  Age: 69 Year
  Sex: Male

DRUGS (5)
  1. PAXIL [Suspect]
     Indication: DEPRESSION
     Dosage: 20 MG PER DAY ORAL
     Route: 048
     Dates: start: 20020925, end: 20021001
  2. ALPRAZOLAM [Concomitant]
  3. BROTIZOLAM [Concomitant]
  4. VEGETAMIN [Concomitant]
  5. PHENOBARBITONE [Concomitant]

REACTIONS (6)
  - DELIRIUM [None]
  - DEPRESSED LEVEL OF CONSCIOUSNESS [None]
  - HALLUCINATION [None]
  - HALLUCINATION, AUDITORY [None]
  - HYPOXIA [None]
  - INSOMNIA [None]
